FAERS Safety Report 22614709 (Version 3)
Quarter: 2024Q3

REPORT INFORMATION
  Report Type: Spontaneous
  Country: ES (occurrence: ES)
  Receive Date: 20230619
  Receipt Date: 20240712
  Transmission Date: 20241017
  Serious: No
  Sender: PIERRE FABRE MEDICAMENT
  Company Number: ES-PFM-2021-11298

PATIENT
  Age: 0 Year
  Sex: Male
  Weight: 6 kg

DRUGS (3)
  1. PROPRANOLOL HYDROCHLORIDE [Suspect]
     Active Substance: PROPRANOLOL HYDROCHLORIDE
     Indication: Infantile haemangioma
     Dosage: 0.5 MG/KG/DAY
     Route: 048
     Dates: start: 20201211, end: 20201227
  2. PROPRANOLOL HYDROCHLORIDE [Suspect]
     Active Substance: PROPRANOLOL HYDROCHLORIDE
     Dosage: 2MG/KG/DAY
     Route: 048
     Dates: start: 20201228, end: 20210514
  3. PROPRANOLOL HYDROCHLORIDE [Suspect]
     Active Substance: PROPRANOLOL HYDROCHLORIDE
     Dosage: 3 MG/KG/DAY (15 MG/DAY)
     Route: 048
     Dates: start: 20210514, end: 202112

REACTIONS (4)
  - Hypertrichosis [Recovering/Resolving]
  - Hair growth abnormal [Recovering/Resolving]
  - Product use issue [Unknown]
  - Off label use [Unknown]

NARRATIVE: CASE EVENT DATE: 20210115
